FAERS Safety Report 11319318 (Version 1)
Quarter: 2015Q3

REPORT INFORMATION
  Report Type: Spontaneous
  Country: US (occurrence: None)
  Receive Date: 20150727
  Receipt Date: 20150727
  Transmission Date: 20151125
  Serious: Yes (Disabling)
  Sender: FDA-Public Use
  Company Number: None

PATIENT
  Age: 76 Year
  Sex: Female
  Weight: 68.04 kg

DRUGS (1)
  1. JANUVIA [Suspect]
     Active Substance: SITAGLIPTIN PHOSPHATE
     Indication: DIABETES MELLITUS
     Dosage: 30   ONCE DAILY  TAKEN BY MOUTH
     Route: 048

REACTIONS (4)
  - Cough [None]
  - Dyspnoea [None]
  - Upper respiratory tract infection [None]
  - Sputum discoloured [None]

NARRATIVE: CASE EVENT DATE: 20150710
